FAERS Safety Report 7205113-7 (Version None)
Quarter: 2010Q4

REPORT INFORMATION
  Report Type: 
  Country: None (occurrence: None)
  Receive Date: 20101230
  Receipt Date: 20101125
  Transmission Date: 20110411
  Serious: Yes (Hospitalization)
  Sender: FDA-Public Use
  Company Number: AU-AMGEN-AUSCT2010000644

PATIENT
  Sex: Female

DRUGS (3)
  1. DENOSUMAB [Suspect]
     Indication: OSTEOPOROSIS POSTMENOPAUSAL
     Dosage: 1.0 ML, Q6MO
     Dates: start: 20051006
  2. VAGIFEM [Concomitant]
  3. OVESTIN [Concomitant]

REACTIONS (1)
  - URGE INCONTINENCE [None]
